FAERS Safety Report 20735211 (Version 3)
Quarter: 2022Q2

REPORT INFORMATION
  Report Type: Spontaneous
  Country: FR (occurrence: FR)
  Receive Date: 20220421
  Receipt Date: 20220628
  Transmission Date: 20220720
  Serious: Yes (Hospitalization, Disabling, Other)
  Sender: FDA-Public Use
  Company Number: FR-ALVOGEN-2022-ALVOGEN-119689

PATIENT
  Sex: Female
  Weight: 48 kg

DRUGS (28)
  1. ATENOLOL [Suspect]
     Active Substance: ATENOLOL
     Indication: Product used for unknown indication
     Route: 065
  2. CORDARONE [Suspect]
     Active Substance: AMIODARONE HYDROCHLORIDE
     Indication: Atrial fibrillation
     Dosage: 1 DF, QD, 1 UNIT ON MORNING
     Route: 065
  3. XARELTO [Suspect]
     Active Substance: RIVAROXABAN
     Indication: Product used for unknown indication
     Dosage: UNK
     Route: 065
  4. AMIODARONE HYDROCHLORIDE [Suspect]
     Active Substance: AMIODARONE HYDROCHLORIDE
     Indication: Atrial fibrillation
     Dosage: UNK
     Route: 065
     Dates: start: 201708
  5. PREDNISONE [Concomitant]
     Active Substance: PREDNISONE
     Indication: Product used for unknown indication
  6. CHOLECALCIFEROL [Concomitant]
     Active Substance: CHOLECALCIFEROL
     Indication: Product used for unknown indication
     Dosage: UNK
     Route: 065
     Dates: start: 2018
  7. LEVOTHYROXINE [Concomitant]
     Active Substance: LEVOTHYROXINE
     Indication: Product used for unknown indication
     Dosage: 1 DF, QD, 1 UNIT DAILY ON MORNING
     Route: 065
     Dates: start: 2003
  8. ROCEPHIN [Concomitant]
     Active Substance: CEFTRIAXONE SODIUM
     Indication: Product used for unknown indication
     Dosage: UNK
     Route: 065
  9. CORTICOSTEROID NOS/CORTICOSTEROID NOS [Concomitant]
     Indication: Product used for unknown indication
     Route: 040
  10. FLAGYL [Concomitant]
     Active Substance: METRONIDAZOLE\METRONIDAZOLE HYDROCHLORIDE
     Indication: Product used for unknown indication
     Dosage: UNK
     Route: 065
  11. CANRENOATE POTASSIUM [Concomitant]
     Active Substance: CANRENOATE POTASSIUM
     Indication: Product used for unknown indication
     Dosage: UNK UNK, QD,HALF UNITS DAILY
     Route: 065
     Dates: start: 20170803
  12. DULOXETINE HYDROCHLORIDE [Concomitant]
     Active Substance: DULOXETINE HYDROCHLORIDE
     Indication: Product used for unknown indication
     Dosage: 2 DF, QD, 2 UNITS DAILY
     Dates: start: 20170803
  13. CYMBALTA [Concomitant]
     Active Substance: DULOXETINE HYDROCHLORIDE
     Indication: Product used for unknown indication
     Dosage: 1 IN THE EVENING
     Route: 065
  14. XARELTO [Concomitant]
     Active Substance: RIVAROXABAN
     Indication: Product used for unknown indication
     Dosage: 1 DF, QD, 1 UNIT ON EVENING
     Dates: start: 20170515, end: 201707
  15. AMINOSALICYLATE CALCIUM/ASCORBIC ACID [Concomitant]
     Indication: Product used for unknown indication
     Dosage: UNK
  16. POLYETHYLENE GLYCOL 4000 [Concomitant]
     Active Substance: POLYETHYLENE GLYCOL 4000
     Indication: Product used for unknown indication
     Dosage: 1 DF, QD, 1UNIT DAILY
     Route: 065
     Dates: start: 20170803
  17. ZOLPIDEM TARTRATE [Concomitant]
     Active Substance: ZOLPIDEM TARTRATE
     Indication: Product used for unknown indication
     Dosage: UNK
     Dates: start: 2018
  18. ZOLPIDEM TARTRATE [Concomitant]
     Active Substance: ZOLPIDEM TARTRATE
     Indication: Product used for unknown indication
     Dosage: 1/2 AT BEDTIME/ 1 TABLET AT BEDTIME
  19. FUROSEMIDE [Concomitant]
     Active Substance: FUROSEMIDE
     Indication: Product used for unknown indication
     Dosage: 0.25 DF, QD, 1 / 4UNIT ON MORNING
     Route: 065
     Dates: start: 201707
  20. SPIRONOLACTONE [Concomitant]
     Active Substance: SPIRONOLACTONE
     Indication: Oedema
     Dosage: UNK
     Route: 065
  21. LANSOPRAZOLE [Concomitant]
     Active Substance: LANSOPRAZOLE
     Indication: Product used for unknown indication
     Route: 065
     Dates: start: 2018
  22. MOVICOL [Concomitant]
     Active Substance: POLYETHYLENE GLYCOL 3350\POTASSIUM CHLORIDE\SODIUM BICARBONATE\SODIUM CHLORIDE
     Indication: Product used for unknown indication
     Route: 065
     Dates: start: 201706
  23. TRIMEBUTINE MALEATE [Concomitant]
     Active Substance: TRIMEBUTINE MALEATE
     Indication: Product used for unknown indication
     Dosage: UNK
     Route: 065
  24. SOTALOL [Concomitant]
     Active Substance: SOTALOL
     Indication: Product used for unknown indication
  25. PREDNISONE [Concomitant]
     Active Substance: PREDNISONE
     Indication: Product used for unknown indication
     Dates: start: 20180123
  26. POTASSIUM CHLORIDE [Concomitant]
     Active Substance: POTASSIUM CHLORIDE
     Indication: Product used for unknown indication
     Dosage: 2 DF, TID, 2 UNITS 3 TIMES DAILY
     Route: 065
     Dates: start: 20170803
  27. CORTISONE [Concomitant]
     Active Substance: CORTISONE
     Indication: Product used for unknown indication
  28. MYSOLINE [Concomitant]
     Active Substance: PRIMIDONE
     Indication: Product used for unknown indication

REACTIONS (46)
  - Aortic valve calcification [Unknown]
  - Cerebellar syndrome [Unknown]
  - Chest pain [Unknown]
  - Cough [Recovering/Resolving]
  - Eye haemorrhage [Unknown]
  - Neuropathy peripheral [Unknown]
  - Optic disc haemorrhage [Unknown]
  - Pneumonia [Unknown]
  - Parkinsonism [Unknown]
  - Rales [Recovering/Resolving]
  - Condition aggravated [Unknown]
  - Oedema peripheral [Recovered/Resolved]
  - Cardiac murmur [Recovered/Resolved]
  - Pleural effusion [Recovering/Resolving]
  - Dyspnoea [Recovered/Resolved]
  - Hypoxia [Recovering/Resolving]
  - Hospitalisation [Recovered/Resolved]
  - Depression [Unknown]
  - Optic neuritis [Not Recovered/Not Resolved]
  - Dyspnoea exertional [Unknown]
  - Hypercapnia [Recovering/Resolving]
  - Hypoventilation [Recovering/Resolving]
  - Arterial disorder [Unknown]
  - Cardiac valve disease [Recovered/Resolved]
  - Visual acuity reduced [Recovering/Resolving]
  - Papilloedema [Unknown]
  - Atrial fibrillation [Unknown]
  - Tremor [Recovering/Resolving]
  - Diplopia [Unknown]
  - Cardiac failure [Recovering/Resolving]
  - Optic atrophy [Unknown]
  - Optic neuropathy [Unknown]
  - Ophthalmic vein thrombosis [Unknown]
  - Aortic valve disease [Unknown]
  - Retinal vein thrombosis [Unknown]
  - Hypothyroidism [Unknown]
  - Extrapyramidal disorder [Unknown]
  - Visual field defect [Unknown]
  - Autonomic nervous system imbalance [Unknown]
  - Loss of personal independence in daily activities [Unknown]
  - Arteriosclerosis [Unknown]
  - Blindness [Unknown]
  - General physical health deterioration [Unknown]
  - Toxicity to various agents [Unknown]
  - Neuropathy peripheral [Unknown]
  - Anaemia [Unknown]

NARRATIVE: CASE EVENT DATE: 20170501
